FAERS Safety Report 10460997 (Version 1)
Quarter: 2014Q3

REPORT INFORMATION
  Report Type: Spontaneous
  Country: US (occurrence: US)
  Receive Date: 20140918
  Receipt Date: 20140918
  Transmission Date: 20150326
  Serious: Yes (Other)
  Sender: FDA-Public Use
  Company Number: PHHY2014US119782

PATIENT
  Sex: Male

DRUGS (2)
  1. HEROIN [Concomitant]
     Active Substance: DIACETYLMORPHINE
     Route: 042
  2. METHYLPHENIDATE [Suspect]
     Active Substance: METHYLPHENIDATE
     Route: 042

REACTIONS (11)
  - Productive cough [Unknown]
  - Lung disorder [Not Recovered/Not Resolved]
  - Retinopathy [Unknown]
  - Emphysema [Not Recovered/Not Resolved]
  - Pleural fibrosis [Unknown]
  - Dyspnoea exertional [Unknown]
  - Drug abuse [Unknown]
  - Respiratory failure [Not Recovered/Not Resolved]
  - Pulmonary fibrosis [Unknown]
  - Breath sounds abnormal [Unknown]
  - Incorrect route of drug administration [Unknown]
